FAERS Safety Report 7469584-3 (Version None)
Quarter: 2011Q2

REPORT INFORMATION
  Report Type: 
  Country: None (occurrence: None)
  Receive Date: 20110510
  Receipt Date: 20070709
  Transmission Date: 20111010
  Serious: Yes (Death, Disabling)
  Sender: FDA-Public Use
  Company Number: US-BAYER-200712163BWH

PATIENT
  Age: 83 Year
  Sex: Male
  Weight: 86 kg

DRUGS (35)
  1. ASPIRIN [Concomitant]
     Dosage: 81 MG
     Route: 048
  2. LASIX [Concomitant]
     Dosage: 40 MG
     Route: 042
     Dates: start: 20051222
  3. CARDIZEM [Concomitant]
     Dosage: 6-25 MG
     Route: 042
     Dates: start: 20051222
  4. DIGOXIN [Concomitant]
     Dosage: 0.5 MG
     Route: 042
     Dates: start: 20051222
  5. LOVENOX [Concomitant]
     Dosage: 80 MG
     Route: 058
     Dates: start: 20051222
  6. AMIODARONE [Concomitant]
     Dosage: 450 MG
     Route: 042
     Dates: start: 20051222
  7. MEPERIDINE [Concomitant]
     Dosage: 25 MG
     Route: 042
     Dates: start: 20051222
  8. EPINEPHRINE [Concomitant]
     Dosage: UNK
     Route: 042
     Dates: start: 20051222
  9. LOPRESSOR [Concomitant]
     Dosage: 5 MG
     Route: 042
     Dates: start: 20051222
  10. SOLU-MEDROL [Concomitant]
     Dosage: 125 MG INHALER
     Dates: start: 20051222
  11. LEVAQUIN [Concomitant]
     Dosage: 500 MG
     Route: 042
     Dates: start: 20051222
  12. LIDOCAINE [Concomitant]
     Dosage: UNK
     Dates: start: 20051222
  13. LEVOPHED [Concomitant]
     Dosage: 4 MG/250 ML@ 3MCG/MIN
     Route: 042
     Dates: start: 20051222
  14. SODIUM NITROPRUSSIDE [Concomitant]
     Dosage: 50 MG IN 250 ML
     Route: 042
     Dates: start: 20051222
  15. SYNTHROID [Concomitant]
     Dosage: 25/100 MG
     Route: 048
  16. NORCURON [Concomitant]
     Dosage: 5 MG
     Route: 042
     Dates: start: 20051222
  17. DOBUTAMINE HYDROCHLORIDE [Concomitant]
     Dosage: 250-500 ML
     Route: 042
     Dates: start: 20051222
  18. DOPAMINE HCL [Concomitant]
     Dosage: UNK
     Route: 042
     Dates: start: 20051222
  19. PLATELETS [Concomitant]
     Dosage: 1 UNIT LEUKOREDUCED
     Route: 042
     Dates: start: 20051222
  20. PROTONIX [Concomitant]
     Dosage: 40 MG
     Route: 048
  21. TRASYLOL [Suspect]
     Indication: CORONARY ARTERY BYPASS
     Dosage: 1 ML TEST DOSE
     Route: 042
     Dates: start: 20051222, end: 20051222
  22. VERSED [Concomitant]
     Dosage: 2-24 MG
     Route: 042
     Dates: start: 20051222
  23. NITROGLYCERIN [Concomitant]
     Dosage: 10 MCG/MIN
     Route: 042
     Dates: start: 20051222
  24. PROTAMINE [Concomitant]
     Dosage: 50 MG
     Route: 042
     Dates: start: 20051222
  25. THROMBIN LOCAL SOLUTION [Concomitant]
     Dosage: 20000 UNITS
     Route: 042
     Dates: start: 20051222
  26. RED BLOOD CELLS, LEUCOCYTE DEPLETED [Concomitant]
     Dosage: 4 UNITS
     Route: 042
     Dates: start: 20051222
  27. CEFAZOLIN [Concomitant]
     Dosage: 1-2 GM
     Route: 042
     Dates: start: 20051222
  28. TRASYLOL [Suspect]
     Indication: AORTIC VALVE REPLACEMENT
     Dosage: 200 ML PUMP PRIME DOSE
     Dates: start: 20051222, end: 20051222
  29. TESTOSTERONE UNDECANOATE [Concomitant]
     Dosage: 200 MG
     Route: 048
  30. HEPARIN [Concomitant]
     Dosage: 25000/250 ML
     Route: 042
     Dates: start: 20051222
  31. OMNIPAQUE 140 [Concomitant]
     Dosage: 125 ML
     Route: 042
     Dates: start: 20041224
  32. FRESH FROZEN PLASMA [Concomitant]
     Dosage: 3 UNITS
     Dates: start: 20051222
  33. BENADRYL ALLERGY + SINUS [DIPHENHYDR HCL,PSEUDOEPH HCL] [Concomitant]
     Dosage: 25 MG
     Route: 042
     Dates: start: 20051222
  34. MORPHINE [Concomitant]
     Dosage: 4MG
     Route: 042
     Dates: start: 20051222
  35. VANCOMYCIN [Concomitant]
     Dosage: 2 GMS
     Route: 042
     Dates: start: 20051222

REACTIONS (9)
  - EMOTIONAL DISTRESS [None]
  - FEAR [None]
  - PAIN [None]
  - RENAL FAILURE [None]
  - ANXIETY [None]
  - INJURY [None]
  - UNEVALUABLE EVENT [None]
  - DEPRESSION [None]
  - ANHEDONIA [None]
